FAERS Safety Report 9412410 (Version 5)
Quarter: 2014Q1

REPORT INFORMATION
  Report Type: Report from Study
  Country: AR (occurrence: AR)
  Receive Date: 20130722
  Receipt Date: 20140305
  Transmission Date: 20141002
  Serious: Yes (Other)
  Sender: FDA-Public Use
  Company Number: AR-ROCHE-1250875

PATIENT
  Sex: Female

DRUGS (1)
  1. RANIBIZUMAB [Suspect]
     Indication: MACULOPATHY
     Dosage: 1 AMPULE PER MONTH
     Route: 050
     Dates: start: 20110727, end: 20130403

REACTIONS (7)
  - Fall [Unknown]
  - Limb injury [Recovering/Resolving]
  - Back pain [Recovering/Resolving]
  - Pain [Recovering/Resolving]
  - Visual acuity reduced [Not Recovered/Not Resolved]
  - Maculopathy [Not Recovered/Not Resolved]
  - Cataract [Not Recovered/Not Resolved]
